FAERS Safety Report 11985719 (Version 3)
Quarter: 2016Q1

REPORT INFORMATION
  Report Type: Report from Study
  Country: AU (occurrence: AU)
  Receive Date: 20160201
  Receipt Date: 20160323
  Transmission Date: 20160526
  Serious: Yes (Hospitalization, Other)
  Sender: FDA-Public Use
  Company Number: PHHY2015AU071362

PATIENT
  Age: 30 Year
  Sex: Male

DRUGS (7)
  1. HALOPERIDOL DECANOATE. [Suspect]
     Active Substance: HALOPERIDOL DECANOATE
     Indication: SCHIZOPHRENIA
     Dosage: 50 MG, EVERY 4 WEEKS
     Route: 065
  2. CLOZARIL [Suspect]
     Active Substance: CLOZAPINE
     Indication: SCHIZOPHRENIA
     Dosage: 250 MG, UNK
     Route: 048
     Dates: start: 20080522
  3. CLOZARIL [Suspect]
     Active Substance: CLOZAPINE
     Dosage: 250 MG, UNK
     Route: 048
     Dates: start: 20160206
  4. CLOZARIL [Suspect]
     Active Substance: CLOZAPINE
     Dosage: 250 MG, UNK
     Route: 048
     Dates: start: 20150621, end: 201506
  5. CLOZARIL [Suspect]
     Active Substance: CLOZAPINE
     Dosage: 325 MG, UNK
     Route: 048
     Dates: start: 20150430
  6. HALOPERIDOL. [Suspect]
     Active Substance: HALOPERIDOL
     Indication: SCHIZOPHRENIA
     Dosage: 5 MG, BID
     Route: 065
  7. OLANZAPINE. [Suspect]
     Active Substance: OLANZAPINE
     Indication: SCHIZOPHRENIA
     Dosage: 10 MG, BID
     Route: 065

REACTIONS (17)
  - Tachycardia [Unknown]
  - Blood uric acid increased [Unknown]
  - Globulins decreased [Unknown]
  - Cardiac disorder [Unknown]
  - Blood creatinine increased [Not Recovered/Not Resolved]
  - Blood glucose increased [Unknown]
  - Blood sodium decreased [Unknown]
  - Ejection fraction decreased [Recovered/Resolved]
  - Left ventricular dysfunction [Recovered/Resolved]
  - Psychiatric decompensation [Unknown]
  - Bilirubin conjugated increased [Not Recovered/Not Resolved]
  - Echocardiogram abnormal [Unknown]
  - Aspartate aminotransferase increased [Not Recovered/Not Resolved]
  - Cardiomyopathy [Recovering/Resolving]
  - Blood lactate dehydrogenase increased [Unknown]
  - Blood bicarbonate decreased [Unknown]
  - Blood bilirubin increased [Not Recovered/Not Resolved]

NARRATIVE: CASE EVENT DATE: 2008
